FAERS Safety Report 22290308 (Version 1)
Quarter: 2023Q2

REPORT INFORMATION
  Report Type: Spontaneous
  Country: US (occurrence: None)
  Receive Date: 20230504
  Receipt Date: 20230504
  Transmission Date: 20230722
  Serious: Yes (Hospitalization, Other)
  Sender: FDA-Public Use
  Company Number: None

PATIENT
  Age: 66 Year
  Sex: Male
  Weight: 109.77 kg

DRUGS (10)
  1. ANTI-DIARRHEAL (LOPERAMIDE HYDROCHLORIDE) [Suspect]
     Active Substance: LOPERAMIDE HYDROCHLORIDE
     Indication: Gastrointestinal disorder
     Dosage: 12 CAPLETS PER BOX 4 TIMES PER DAY AS DR. ORDERED BY MOUTH?
     Route: 048
     Dates: start: 200301, end: 20230215
  2. SULFASALZINE E.C [Concomitant]
  3. METOPROLOL ER SUC [Concomitant]
  4. LISINOPRIL [Concomitant]
     Active Substance: LISINOPRIL
  5. PREDNISONE [Concomitant]
     Active Substance: PREDNISONE
  6. FUROSEMIDE [Concomitant]
     Active Substance: FUROSEMIDE
  7. BISMUTH SUB [Concomitant]
  8. FAMOTIDINE [Concomitant]
     Active Substance: FAMOTIDINE
  9. LOPERAMIDE [Concomitant]
     Active Substance: LOPERAMIDE
  10. LIDOCAINE TOP ANAL [Concomitant]

REACTIONS (6)
  - Crohn^s disease [None]
  - Loss of consciousness [None]
  - Gait inability [None]
  - Dizziness [None]
  - Product solubility abnormal [None]
  - Product residue present [None]
